FAERS Safety Report 13167546 (Version 3)
Quarter: 2017Q2

REPORT INFORMATION
  Report Type: Spontaneous
  Country: US (occurrence: US)
  Receive Date: 20170131
  Receipt Date: 20170427
  Transmission Date: 20170830
  Serious: No
  Sender: FDA-Public Use
  Company Number: US-PFIZER INC-2017039133

PATIENT
  Age: 64 Year
  Sex: Female

DRUGS (59)
  1. URIPAS [Suspect]
     Active Substance: DOXAZOSIN MESYLATE
  2. DOXYCYCLINE. [Suspect]
     Active Substance: DOXYCYCLINE
     Dosage: UNK
  3. CEFTIN [Suspect]
     Active Substance: CEFUROXIME AXETIL
     Dosage: UNK
  4. PROVENTIL HFA [Concomitant]
     Active Substance: ALBUTEROL SULFATE
     Dosage: 2 DF, AS NEEDED (USE 2 PUFFS ORALLY EVERY 4 HOURS)
     Route: 048
  5. TYLENOL [Concomitant]
     Active Substance: ACETAMINOPHEN
     Dosage: 500 MG, UNK (TAKE AS NEEDED AS DIRECTED)
  6. PRAVASTATIN. [Suspect]
     Active Substance: PRAVASTATIN
     Dosage: UNK
  7. ZETIA [Suspect]
     Active Substance: EZETIMIBE
     Dosage: UNK
  8. ENDURACIN [Suspect]
     Active Substance: NIACIN
     Dosage: UNK
  9. CIPRO [Suspect]
     Active Substance: CIPROFLOXACIN HYDROCHLORIDE
     Dosage: UNK
  10. KEFLEX [Suspect]
     Active Substance: CEPHALEXIN
     Dosage: UNK
  11. CYCLOBENZAPRINE HCL [Concomitant]
     Active Substance: CYCLOBENZAPRINE HYDROCHLORIDE
     Dosage: 10 MG, 3X/DAY
     Route: 048
  12. LUNESTA [Concomitant]
     Active Substance: ESZOPICLONE
     Dosage: 3 MG, 1X/DAY
     Route: 048
  13. SAVELLA [Suspect]
     Active Substance: MILNACIPRAN HYDROCHLORIDE
     Dosage: UNK
  14. LASIX [Concomitant]
     Active Substance: FUROSEMIDE
     Indication: OEDEMA PERIPHERAL
     Dosage: 20 MG, 2X/DAY, (TAKE 1 TABLET BY MOUTH TWICE DAILY )
     Route: 048
  15. XELJANZ [Concomitant]
     Active Substance: TOFACITINIB CITRATE
     Indication: RHEUMATOID ARTHRITIS
     Dosage: 5 MG, 2X/DAY
     Route: 048
  16. HYALURONIC ACID-VITAMIN C CAPS [Concomitant]
     Dosage: UNK UNK, DAILY (TAKE 3 TABLE SPOONS DAILY ( TAKE 3 TABLE SPOONS TAKING LIQUID))
  17. FOLIC ACID. [Concomitant]
     Active Substance: FOLIC ACID
     Dosage: 1 MG, AS NEEDED (DAILY)
     Route: 048
  18. LIPITOR [Suspect]
     Active Substance: ATORVASTATIN CALCIUM
     Dosage: UNK
  19. CYMBALTA [Suspect]
     Active Substance: DULOXETINE HYDROCHLORIDE
     Dosage: UNK
  20. MACRODANTIN [Suspect]
     Active Substance: NITROFURANTOIN
     Dosage: UNK
  21. FLOXIN [Suspect]
     Active Substance: OFLOXACIN
     Dosage: UNK
  22. METOPROLOL SUCCINATE. [Concomitant]
     Active Substance: METOPROLOL SUCCINATE
     Dosage: 25 MG, DAILY (TWICE)
     Route: 048
  23. FENOFIBRATE. [Concomitant]
     Active Substance: FENOFIBRATE
     Dosage: 160 MG, 1X/DAY (AT SUPPER)
     Route: 048
  24. SODIUM CHLORIDE. [Concomitant]
     Active Substance: SODIUM CHLORIDE
     Indication: SINUSITIS
     Dosage: UNK (USE AS DIRECTED)
  25. SEREVENT DISKUS [Concomitant]
     Active Substance: SALMETEROL XINAFOATE
     Dosage: 50 UG, UNK (TAKE TWICE DAILY AS DIRECTED)
  26. PSYLLIUM [Concomitant]
     Active Substance: PLANTAGO SEED
     Dosage: UNK, 3X/DAY, (2 CAPS THREE TIMES DAILY)
  27. NEURONTIN [Concomitant]
     Active Substance: GABAPENTIN
     Dosage: 600 MG, 3X/DAY (WITH MEALS)
  28. PROMETHAZINE HCL [Concomitant]
     Active Substance: PROMETHAZINE HYDROCHLORIDE
     Dosage: 25 MG, UNK (ONE THREE TO FOUR TIMES DAILY)
  29. ERYTHROMYCIN. [Suspect]
     Active Substance: ERYTHROMYCIN
     Dosage: UNK
  30. TUSSIONEX PENNKINETIC [Suspect]
     Active Substance: CHLORPHENIRAMINE\HYDROCODONE
     Dosage: UNK
  31. SIMVASTATIN. [Suspect]
     Active Substance: SIMVASTATIN
     Dosage: UNK
  32. LIVALO [Suspect]
     Active Substance: PITAVASTATIN CALCIUM
     Dosage: UNK
  33. BIAXIN [Suspect]
     Active Substance: CLARITHROMYCIN
     Dosage: UNK
  34. FUROSEMIDE. [Concomitant]
     Active Substance: FUROSEMIDE
     Dosage: 40 MG, 1X/DAY
     Route: 048
  35. HYDROCORTISONE. [Concomitant]
     Active Substance: HYDROCORTISONE
     Dosage: 10 MG, DAILY
     Route: 048
  36. SINGULAIR [Concomitant]
     Active Substance: MONTELUKAST SODIUM
     Dosage: 10 MG, UNK (TAKE AT BEDTIME AS DIRECTED)
  37. PREVACID [Concomitant]
     Active Substance: LANSOPRAZOLE
     Dosage: 30 MG, UNK (TWICE DAILY AS DIRECTED )
  38. DOMPERIDONE [Concomitant]
     Active Substance: DOMPERIDONE
     Dosage: 10 MG, 2X/DAY (ONE TABLET BEFORE MEAL AND AT BEDTIME)
  39. COENZYME Q10 [Concomitant]
     Active Substance: UBIDECARENONE
     Dosage: 200 MG, DAILY
     Route: 048
  40. LEVOTHYROXINE SODIUM. [Concomitant]
     Active Substance: LEVOTHYROXINE SODIUM
     Dosage: 75 UG, DAILY
     Route: 048
  41. METHOTREXATE SODIUM. [Suspect]
     Active Substance: METHOTREXATE SODIUM
     Dosage: UNK
  42. TETRIS [Suspect]
     Active Substance: AZITHROMYCIN DIHYDRATE
     Dosage: UNK
  43. TETANUS TOXOID ADSORBED (VACCINE) [Suspect]
     Active Substance: CLOSTRIDIUM TETANI TOXOID ANTIGEN (FORMALDEHYDE INACTIVATED)
     Indication: IMMUNISATION
     Dosage: UNK
  44. CODEINE [Suspect]
     Active Substance: CODEINE
     Dosage: UNK
  45. SULFAMETHIZOLE [Suspect]
     Active Substance: SULFAMETHIZOLE
     Dosage: UNK
  46. CODEINE AND GUAIFENESIN [Concomitant]
     Active Substance: CODEINE\GUAIFENESIN
     Dosage: UNK UNK, AS NEEDED [GUAIFENESIN: 100 MG] / [CODEINE: 10 MG] (2 TSP Q 4-6 HOURS)
  47. METOPROLOL SUCCINATE. [Concomitant]
     Active Substance: METOPROLOL SUCCINATE
     Dosage: 25 MG, DAILY
     Route: 048
  48. RED YEAST RICE [Concomitant]
     Active Substance: DIETARY SUPPLEMENT
     Dosage: UNK, 2X/DAY
     Route: 048
  49. TRAMADOL HCL [Concomitant]
     Active Substance: TRAMADOL HYDROCHLORIDE
     Dosage: 200 MG, DAILY
  50. QVAR [Concomitant]
     Active Substance: BECLOMETHASONE DIPROPIONATE
     Dosage: 2 DF, 2X/DAY (2 INHALATIONS TWICE A DAY)
     Route: 055
  51. URISPAS [Suspect]
     Active Substance: FLAVOXATE HYDROCHLORIDE
     Dosage: UNK
  52. CRESTOR [Suspect]
     Active Substance: ROSUVASTATIN CALCIUM
     Dosage: UNK
  53. MIRALAX [Concomitant]
     Active Substance: POLYETHYLENE GLYCOL 3350
     Dosage: UNK (TAKE 1 CAPFUL DAILY AS DIRECTED)
  54. VITAMIN D3 [Concomitant]
     Active Substance: CHOLECALCIFEROL
     Dosage: 2000 IU, UNK, (1 CAPSULE DAILY)
  55. CALCIUM [Concomitant]
     Active Substance: CALCIUM
     Dosage: UNK (TAKE TWICE DAILY AS DIRECTED)
  56. LYRICA [Suspect]
     Active Substance: PREGABALIN
     Dosage: UNK
  57. PLAQUENIL [Concomitant]
     Active Substance: HYDROXYCHLOROQUINE SULFATE
     Dosage: 200 MG, 2X/DAY
     Route: 048
  58. NORCO [Concomitant]
     Active Substance: ACETAMINOPHEN\HYDROCODONE BITARTRATE
     Indication: PAIN
     Dosage: 1 DF, AS NEEDED [HYDROCODONE: 7.5 MG] / [ACETAMINOPHEN: 325MG] (ONE TABLET EVERY 6 HOURS)
  59. SANCTURA XR [Concomitant]
     Active Substance: TROSPIUM CHLORIDE
     Dosage: 60 MG, DAILY
     Route: 048

REACTIONS (1)
  - Drug hypersensitivity [Unknown]
